FAERS Safety Report 22302034 (Version 1)
Quarter: 2023Q2

REPORT INFORMATION
  Report Type: Report from Study
  Country: US (occurrence: None)
  Receive Date: 20230510
  Receipt Date: 20230510
  Transmission Date: 20230722
  Serious: Yes (Death)
  Sender: FDA-Public Use
  Company Number: 2023A106208

PATIENT
  Sex: Female
  Weight: 73 kg

DRUGS (8)
  1. CALQUENCE [Suspect]
     Active Substance: ACALABRUTINIB
     Indication: Chronic lymphocytic leukaemia
     Route: 048
     Dates: start: 20220613
  2. ALBUTEROL SULFATE HFA INHALATION [Concomitant]
  3. COLACE [Concomitant]
     Active Substance: DOCUSATE SODIUM
  4. ROPIONATE NASAL SUSPEN [Concomitant]
  5. MIRALAX [Concomitant]
     Active Substance: POLYETHYLENE GLYCOL 3350
  6. VITAMINS [Concomitant]
     Active Substance: VITAMINS
  7. ONDANSETRON [Concomitant]
     Active Substance: ONDANSETRON
  8. TYLENOL [Concomitant]
     Active Substance: ACETAMINOPHEN

REACTIONS (4)
  - Dry mouth [Fatal]
  - Constipation [Unknown]
  - Headache [Unknown]
  - Fatigue [Unknown]
